FAERS Safety Report 24579502 (Version 2)
Quarter: 2025Q1

REPORT INFORMATION
  Report Type: Spontaneous
  Country: US (occurrence: US)
  Receive Date: 20241105
  Receipt Date: 20250110
  Transmission Date: 20250408
  Serious: Yes (Death, Hospitalization)
  Sender: SERVIER
  Company Number: US-SERVIER-S24014105

PATIENT

DRUGS (9)
  1. ONCASPAR [Suspect]
     Active Substance: PEGASPARGASE
     Indication: B-cell type acute leukaemia
     Route: 042
     Dates: start: 20221019, end: 20230914
  2. DAUNORUBICIN [Concomitant]
     Active Substance: DAUNORUBICIN
     Indication: B-cell type acute leukaemia
     Dosage: 25 MG/M2, 1X/WEEK
     Route: 042
     Dates: start: 20220930, end: 20221021
  3. VINCRISTINE [Concomitant]
     Active Substance: VINCRISTINE
     Indication: B-cell type acute leukaemia
     Dosage: 2 MG, 1X/WEEK
     Route: 042
     Dates: start: 20220930, end: 20230925
  4. CYTOXAN [Concomitant]
     Active Substance: CYCLOPHOSPHAMIDE
     Indication: B-cell type acute leukaemia
     Dosage: 1000 MG/M2, EVERY 4 WEEKS, ON DAYS 1 AND 29 OF CONSOLIDATION
     Route: 042
     Dates: start: 20221121, end: 20221219
  5. CYTARABINE [Concomitant]
     Active Substance: CYTARABINE
     Indication: B-cell type acute leukaemia
     Route: 042
     Dates: start: 20221121, end: 20221229
  6. MERCAPTOPURINE [Concomitant]
     Active Substance: MERCAPTOPURINE
     Indication: B-cell type acute leukaemia
     Route: 048
     Dates: start: 20221121, end: 20230101
  7. METHOTREXATE [Concomitant]
     Active Substance: METHOTREXATE
     Indication: B-cell type acute leukaemia
     Dosage: 260 MG/M2 (ESCALATING DOSE 100-300 MG/M2 IV WEEKLY DURING INTERIM MAINTENANCE)
     Route: 042
     Dates: start: 20230502, end: 20230613
  8. DEXAMETHASONE [Concomitant]
     Active Substance: DEXAMETHASONE
     Indication: B-cell type acute leukaemia
     Dosage: 5 MG/M2, BID, DAY 1-7 OF DELAYED INTENSIFICATION
     Route: 048
     Dates: start: 20230911, end: 20230917
  9. BLINATUMOMAB [Concomitant]
     Active Substance: BLINATUMOMAB
     Indication: B-cell type acute leukaemia
     Dosage: 28 ?G, QD, IN 28-DAY CYCLES
     Route: 042
     Dates: start: 20230210, end: 20230817

REACTIONS (10)
  - Hepatic failure [Fatal]
  - Pulmonary embolism [Fatal]
  - Multiple organ dysfunction syndrome [Fatal]
  - Respiratory failure [Fatal]
  - Renal failure [Fatal]
  - Blood triglycerides increased [Recovering/Resolving]
  - Protein total decreased [Recovering/Resolving]
  - Hyperbilirubinaemia [Recovered/Resolved]
  - Hypertriglyceridaemia [Recovered/Resolved]
  - Hypofibrinogenaemia [Recovered/Resolved]

NARRATIVE: CASE EVENT DATE: 20221201
